FAERS Safety Report 15697869 (Version 2)
Quarter: 2018Q4

REPORT INFORMATION
  Report Type: Spontaneous
  Country: BR (occurrence: BR)
  Receive Date: 20181207
  Receipt Date: 20181220
  Transmission Date: 20190205
  Serious: Yes (Other)
  Sender: FDA-Public Use
  Company Number: BR-TORRENT-00004763

PATIENT
  Age: 37 Year
  Sex: Female
  Weight: 113 kg

DRUGS (3)
  1. INDAPEN SR [Suspect]
     Active Substance: INDAPAMIDE
     Indication: HYPERTENSION
     Dosage: LNDAPEN SR 1.5 MG ONE TABLET DAILY
     Dates: start: 2014
  2. TORLOS [Suspect]
     Active Substance: LOSARTAN POTASSIUM
     Indication: HYPERTENSION
     Dosage: 1 TABLET 2 TIMES DAILY
     Route: 048
     Dates: start: 20181119
  3. LOSARTAN. [Suspect]
     Active Substance: LOSARTAN
     Indication: HYPERTENSION
     Dosage: UNKNOWN

REACTIONS (6)
  - Abdominal pain upper [Unknown]
  - Headache [Unknown]
  - Ulnar tunnel syndrome [Not Recovered/Not Resolved]
  - Carpal tunnel syndrome [Not Recovered/Not Resolved]
  - Drug ineffective [Unknown]
  - Chills [Not Recovered/Not Resolved]

NARRATIVE: CASE EVENT DATE: 2015
